FAERS Safety Report 4418378-1 (Version None)
Quarter: 2004Q3

REPORT INFORMATION
  Report Type: 
  Country: None (occurrence: None)
  Receive Date: 20040809
  Receipt Date: 20040407
  Transmission Date: 20050211
  Serious: Yes (Life-Threatening, Hospitalization, Other)
  Sender: FDA-Public Use
  Company Number: US-GLAXOSMITHKLINE-A0506256A

PATIENT
  Age: 32 Year
  Sex: Female
  Weight: 59.1 kg

DRUGS (4)
  1. PAXIL [Suspect]
     Indication: PANIC DISORDER
     Dosage: 12.5MG PER DAY
     Route: 048
  2. TOPAMAX [Concomitant]
     Indication: ANXIETY
     Dosage: 100MG AT NIGHT
     Route: 048
     Dates: start: 20030101
  3. WELLBUTRIN XL [Concomitant]
     Indication: DEPRESSION
     Dosage: 150MG PER DAY
     Route: 048
     Dates: start: 20030101
  4. ATIVAN [Concomitant]
     Indication: ANXIETY
     Route: 048
     Dates: start: 20020101

REACTIONS (3)
  - CONTUSION [None]
  - MENORRHAGIA [None]
  - PLATELET COUNT DECREASED [None]
